FAERS Safety Report 7704071-6 (Version None)
Quarter: 2011Q3

REPORT INFORMATION
  Report Type: 
  Country: None (occurrence: None)
  Receive Date: 20110823
  Receipt Date: 20110812
  Transmission Date: 20111222
  Serious: Yes (Other)
  Sender: FDA-Public Use
  Company Number: US-JNJFOC-20110808015

PATIENT
  Sex: Female
  Weight: 113.4 kg

DRUGS (9)
  1. REMICADE [Suspect]
     Indication: PSORIASIS
     Route: 042
  2. REMICADE [Suspect]
     Indication: PSORIATIC ARTHROPATHY
     Route: 042
  3. REMICADE [Suspect]
     Route: 042
     Dates: start: 20110806
  4. XANAX [Concomitant]
     Indication: ANXIETY
     Route: 048
  5. REMICADE [Suspect]
     Route: 042
  6. THYROID THERAPY [Concomitant]
     Indication: THYROID DISORDER
     Route: 048
  7. REMICADE [Suspect]
     Route: 042
  8. REMICADE [Suspect]
     Route: 042
     Dates: start: 20110806
  9. ZOLOFT [Concomitant]
     Indication: DEPRESSION
     Route: 048

REACTIONS (3)
  - DIARRHOEA [None]
  - PYREXIA [None]
  - RESPIRATORY TRACT INFECTION [None]
